FAERS Safety Report 25994914 (Version 1)
Quarter: 2025Q4

REPORT INFORMATION
  Report Type: Report from Study
  Country: EU (occurrence: EU)
  Receive Date: 20251104
  Receipt Date: 20251104
  Transmission Date: 20260118
  Serious: Yes (Other)
  Sender: ALEXION PHARMACEUTICALS
  Company Number: EU-ROCHE-10000406846

PATIENT

DRUGS (9)
  1. FASLODEX [Suspect]
     Active Substance: FULVESTRANT
     Indication: Product used for unknown indication
     Dosage: 500 MILLIGRAM
  2. FASLODEX [Suspect]
     Active Substance: FULVESTRANT
  3. INAVOLISIB [Suspect]
     Active Substance: INAVOLISIB
     Indication: Product used for unknown indication
     Dosage: 9 MILLIGRAM
     Route: 065
  4. INAVOLISIB [Suspect]
     Active Substance: INAVOLISIB
     Dosage: 6 MILLIGRAM
     Route: 065
  5. INAVOLISIB [Suspect]
     Active Substance: INAVOLISIB
     Dosage: 9 MILLIGRAM
     Route: 065
  6. PALBOCICLIB [Suspect]
     Active Substance: PALBOCICLIB
     Indication: Product used for unknown indication
     Dosage: 150 MILLIGRAM
     Route: 065
  7. PALBOCICLIB [Suspect]
     Active Substance: PALBOCICLIB
     Dosage: 100 MILLIGRAM
     Route: 065
  8. PALBOCICLIB [Suspect]
     Active Substance: PALBOCICLIB
     Dosage: 74 MILLIGRAM
     Route: 065
  9. GOSERELIN [Suspect]
     Active Substance: GOSERELIN
     Indication: Product used for unknown indication

REACTIONS (3)
  - Acute kidney injury [Recovered/Resolved]
  - Diarrhoea [Unknown]
  - Nausea [Unknown]
